FAERS Safety Report 6241159-3 (Version None)
Quarter: 2009Q2

REPORT INFORMATION
  Report Type: 
  Country: None (occurrence: None)
  Receive Date: 20090623
  Receipt Date: 20090615
  Transmission Date: 20091009
  Serious: Yes (Life-Threatening, Hospitalization)
  Sender: FDA-Public Use
  Company Number: US-GENENTECH-285134

PATIENT
  Sex: Female
  Weight: 57.143 kg

DRUGS (1)
  1. BEVACIZUMAB [Suspect]
     Indication: DRUG USE FOR UNKNOWN INDICATION
     Dosage: 15 MG/KG, Q3W
     Route: 042
     Dates: start: 20080909, end: 20090319

REACTIONS (1)
  - CARDIOMYOPATHY [None]
